FAERS Safety Report 8021492-5 (Version None)
Quarter: 2011Q4

REPORT INFORMATION
  Report Type: 
  Country: None (occurrence: None)
  Receive Date: 20111230
  Receipt Date: 20111230
  Transmission Date: 20120403
  Serious: No
  Sender: FDA-Public Use
  Company Number: None

PATIENT
  Sex: Male

DRUGS (1)
  1. REVLIMID [Suspect]
     Indication: MULTIPLE MYELOMA
     Dosage: REVLIMID 10MG DAILY X21D/28D ORAL
     Route: 048
     Dates: start: 20110117, end: 20111103

REACTIONS (4)
  - PLASMACYTOSIS [None]
  - BLOOD IMMUNOGLOBULIN A INCREASED [None]
  - NEUROPATHY PERIPHERAL [None]
  - STEM CELL TRANSPLANT [None]
